FAERS Safety Report 5343300-3 (Version None)
Quarter: 2007Q2

REPORT INFORMATION
  Report Type: 
  Country: None (occurrence: None)
  Receive Date: 20070502
  Receipt Date: 20060901
  Transmission Date: 20071010
  Serious: Yes (Other)
  Sender: FDA-Public Use
  Company Number: PHEH2006US11300

PATIENT
  Age: 54 Year
  Sex: Male

DRUGS (3)
  1. LOTREL [Suspect]
     Indication: HYPERTENSION
     Dosage: QD, ORAL
     Route: 048
     Dates: end: 20060831
  2. HYDROCHLOROTHIAZIDE [Concomitant]
  3. PRILOSEC [Concomitant]

REACTIONS (2)
  - ANGIOEDEMA [None]
  - OEDEMA PERIPHERAL [None]
